FAERS Safety Report 9920815 (Version 1)
Quarter: 2014Q1

REPORT INFORMATION
  Report Type: Spontaneous
  Country: US (occurrence: US)
  Receive Date: 20140224
  Receipt Date: 20140224
  Transmission Date: 20141002
  Serious: No
  Sender: FDA-Public Use
  Company Number: US-009507513-1402USA005464

PATIENT
  Age: 62 Year
  Sex: Female

DRUGS (1)
  1. VICTRELIS [Suspect]
     Indication: HEPATITIS C
     Dosage: 800 MG, TID
     Route: 048
     Dates: start: 201308, end: 20140121

REACTIONS (5)
  - Eye discharge [Recovering/Resolving]
  - Skin exfoliation [Recovering/Resolving]
  - Visual impairment [Recovering/Resolving]
  - Dry skin [Recovering/Resolving]
  - Dysgeusia [Recovering/Resolving]
